FAERS Safety Report 9346771 (Version 1)
Quarter: 2013Q2

REPORT INFORMATION
  Report Type: Spontaneous
  Country: US (occurrence: US)
  Receive Date: 20130613
  Receipt Date: 20130613
  Transmission Date: 20140414
  Serious: No
  Sender: FDA-Public Use
  Company Number: US-MYLANLABS-2013S1009026

PATIENT
  Age: 66 Year
  Sex: Male
  Weight: 86.18 kg

DRUGS (8)
  1. CLOPIDOGREL TABLETS USP [Suspect]
     Indication: CORONARY ARTERIAL STENT INSERTION
     Route: 048
     Dates: start: 201302
  2. LISINOPRIL [Concomitant]
  3. ATENOLOL [Concomitant]
  4. SIMVASTATIN [Concomitant]
     Indication: BLOOD CHOLESTEROL INCREASED
  5. ALLOPURINOL [Concomitant]
  6. ASA [Concomitant]
  7. VITAMIN B COMPLEX [Concomitant]
  8. VITAMIN D [Concomitant]

REACTIONS (1)
  - Urticaria [Not Recovered/Not Resolved]
